FAERS Safety Report 5056189-7 (Version None)
Quarter: 2006Q3

REPORT INFORMATION
  Report Type: 
  Country: None (occurrence: None)
  Receive Date: 20060714
  Receipt Date: 20060626
  Transmission Date: 20061208
  Serious: Yes (Hospitalization, Other)
  Sender: FDA-Public Use
  Company Number: US200606005669

PATIENT
  Age: 75 Year
  Sex: Male

DRUGS (4)
  1. HUMULIN N [Suspect]
     Indication: DIABETES MELLITUS
     Dosage: 34 U, DAILY (1/D)
     Dates: start: 19940101
  2. HUMULIN R [Suspect]
     Indication: DIABETES MELLITUS
     Dosage: 2 U, DAILY (1/D)
     Dates: start: 19860101
  3. PRINIVIL [Concomitant]
  4. ASPIRIN TAB [Concomitant]

REACTIONS (3)
  - CORONARY ARTERY BYPASS [None]
  - DEAFNESS UNILATERAL [None]
  - LYMPHOMA [None]
